FAERS Safety Report 9758813 (Version 1)
Quarter: 2013Q4

REPORT INFORMATION
  Report Type: Spontaneous
  Country: US (occurrence: None)
  Receive Date: 20131216
  Receipt Date: 20131216
  Transmission Date: 20140711
  Serious: Yes (Hospitalization, Other)
  Sender: FDA-Public Use
  Company Number: 084083

PATIENT
  Sex: Male

DRUGS (1)
  1. CIMZIA [Suspect]
     Indication: CROHN^S DISEASE
     Dosage: ( ), (200 MG 1X/2 WEEKS)

REACTIONS (5)
  - Dehydration [None]
  - Crohn^s disease [None]
  - Gastrointestinal infection [None]
  - Anal fistula [None]
  - Drug ineffective [None]
